FAERS Safety Report 17469713 (Version 1)
Quarter: 2020Q1

REPORT INFORMATION
  Report Type: Spontaneous
  Country: PL (occurrence: PL)
  Receive Date: 20200227
  Receipt Date: 20200227
  Transmission Date: 20200409
  Serious: Yes (Other)
  Sender: FDA-Public Use
  Company Number: NVSC2020PL050480

PATIENT
  Age: 43 Year
  Sex: Female

DRUGS (2)
  1. MIDOSTAURIN [Suspect]
     Active Substance: MIDOSTAURIN
     Indication: ACUTE MYELOID LEUKAEMIA
     Dosage: 50 MG (2 X (DAY S:8-21)
     Route: 048
  2. CYTARABINE. [Suspect]
     Active Substance: CYTARABINE
     Indication: ACUTE MYELOID LEUKAEMIA
     Dosage: UNK (4 CYCLES)
     Route: 065
     Dates: start: 201909, end: 202002

REACTIONS (3)
  - Staphylococcal infection [Unknown]
  - Fungaemia [Unknown]
  - Escherichia bacteraemia [Unknown]
